FAERS Safety Report 6172472-6 (Version None)
Quarter: 2009Q2

REPORT INFORMATION
  Report Type: 
  Country: None (occurrence: None)
  Receive Date: 20090429
  Receipt Date: 20090422
  Transmission Date: 20091009
  Serious: Yes (Other)
  Sender: FDA-Public Use
  Company Number: FR-ABBOTT-06P-056-0353830-00

PATIENT
  Sex: Female
  Weight: 52 kg

DRUGS (18)
  1. HUMIRA [Suspect]
     Indication: PSORIASIS
     Route: 058
     Dates: start: 20050901
  2. HUMIRA [Suspect]
     Route: 058
     Dates: start: 20060201
  3. HUMIRA [Suspect]
     Dates: start: 20060918
  4. HUMIRA [Suspect]
     Dates: start: 20070525
  5. HUMIRA [Suspect]
     Dates: start: 20070709
  6. HUMIRA [Suspect]
     Dates: start: 20080128, end: 20090116
  7. HUMIRA [Suspect]
     Dates: start: 20090210
  8. HUMIRA [Suspect]
     Dates: start: 20090316
  9. PREDNISONE [Concomitant]
     Indication: PSORIATIC ARTHROPATHY
     Route: 048
     Dates: start: 19910101
  10. NAPROXEN [Concomitant]
     Indication: PSORIATIC ARTHROPATHY
     Route: 048
     Dates: start: 19860101
  11. TRAMADOL HCL [Concomitant]
     Indication: PSORIATIC ARTHROPATHY
     Dosage: 2-6 DOSAGE FORMS DAILY
     Route: 048
  12. TETRAZEPAM [Concomitant]
     Indication: PSORIATIC ARTHROPATHY
     Route: 048
     Dates: start: 20010101
  13. ALENDRONATE [Concomitant]
     Indication: OSTEOPOROSIS
     Route: 048
     Dates: start: 20050601
  14. ESOMEPRAZOLE [Concomitant]
     Indication: DRUG USE FOR UNKNOWN INDICATION
     Route: 048
     Dates: start: 20060601
  15. CALCIUM CARBONATE [Concomitant]
     Indication: OSTEOPOROSIS
     Route: 065
     Dates: start: 19910101
  16. NITROFURANTOINE [Concomitant]
     Indication: PROPHYLAXIS URINARY TRACT INFECTION
     Dates: start: 20051201
  17. SOYBEAN AVOCADO UNSAPONIFIABLE [Concomitant]
     Indication: PSORIATIC ARTHROPATHY
     Route: 048
     Dates: start: 20030601
  18. DYDROGESTERONE TAB [Concomitant]
     Indication: MENOPAUSE
     Route: 048
     Dates: start: 20060601

REACTIONS (8)
  - ALOPECIA [None]
  - DYSPHAGIA [None]
  - FALL [None]
  - FATIGUE [None]
  - FEMUR FRACTURE [None]
  - FUNGAL OESOPHAGITIS [None]
  - INSOMNIA [None]
  - WEIGHT INCREASED [None]
